FAERS Safety Report 22033575 (Version 1)
Quarter: 2023Q1

REPORT INFORMATION
  Report Type: Report from Study
  Country: US (occurrence: US)
  Receive Date: 20230224
  Receipt Date: 20230224
  Transmission Date: 20230418
  Serious: Yes (Other)
  Sender: FDA-Public Use
  Company Number: US-002147023-NVSC2023US041100

PATIENT
  Sex: Male

DRUGS (1)
  1. KESIMPTA [Suspect]
     Active Substance: OFATUMUMAB
     Indication: Multiple sclerosis
     Dosage: 20 MG OTHER DOSAGE (20MG/0.4ML)
     Route: 065

REACTIONS (3)
  - Multiple sclerosis relapse [Unknown]
  - Mobility decreased [Unknown]
  - Product storage error [Unknown]
